FAERS Safety Report 4727727-6 (Version None)
Quarter: 2005Q3

REPORT INFORMATION
  Report Type: 
  Country: None (occurrence: None)
  Receive Date: 20050727
  Receipt Date: 20050714
  Transmission Date: 20060218
  Serious: Yes (Death)
  Sender: FDA-Public Use
  Company Number: 2005103475

PATIENT
  Age: 84 Year
  Sex: Female
  Weight: 50 kg

DRUGS (3)
  1. CELEBREX [Suspect]
     Indication: PROCTITIS
     Dosage: 200 MG, ORAL
     Route: 048
  2. ASACOL [Concomitant]
  3. ANTI-ASTHMATICS (ANTI-ASTHMATICS) [Concomitant]

REACTIONS (1)
  - SUDDEN DEATH [None]
